FAERS Safety Report 6671467-3 (Version None)
Quarter: 2010Q2

REPORT INFORMATION
  Report Type: 
  Country: None (occurrence: None)
  Receive Date: 20100406
  Receipt Date: 20100406
  Transmission Date: 20101027
  Serious: Yes (Disabling)
  Sender: FDA-Public Use
  Company Number: None

PATIENT
  Age: 62 Year
  Sex: Female
  Weight: 88.4514 kg

DRUGS (2)
  1. PATOPRAZOLE SOD 40 MG SUN PHARMACEUTICAL IND. [Suspect]
     Indication: GASTROOESOPHAGEAL REFLUX DISEASE
     Dosage: 40 MG TWICE A DAY PO
     Route: 048
     Dates: start: 20100301, end: 20100404
  2. PATOPRAZOLE SOD 40 MG SUN PHARMACEUTICAL IND. [Suspect]
     Indication: HIATUS HERNIA
     Dosage: 40 MG TWICE A DAY PO
     Route: 048
     Dates: start: 20100301, end: 20100404

REACTIONS (3)
  - DRUG INEFFECTIVE [None]
  - GASTROOESOPHAGEAL REFLUX DISEASE [None]
  - PRODUCT SUBSTITUTION ISSUE [None]
